FAERS Safety Report 15967799 (Version 1)
Quarter: 2019Q1

REPORT INFORMATION
  Report Type: Spontaneous
  Country: GR (occurrence: GR)
  Receive Date: 20190215
  Receipt Date: 20190215
  Transmission Date: 20190418
  Serious: Yes (Other)
  Sender: FDA-Public Use
  Company Number: GR-MYLANLABS-2019M1013931

PATIENT
  Sex: Female

DRUGS (2)
  1. PROCORALAN [Concomitant]
     Active Substance: IVABRADINE
  2. KLARICID [Suspect]
     Active Substance: CLARITHROMYCIN
     Indication: PRODUCT USED FOR UNKNOWN INDICATION
     Dosage: 500 MILLIGRAM

REACTIONS (2)
  - Drug effect decreased [Unknown]
  - Drug interaction [Unknown]
